FAERS Safety Report 7158971-9 (Version None)
Quarter: 2010Q4

REPORT INFORMATION
  Report Type: 
  Country: None (occurrence: None)
  Receive Date: 20101214
  Receipt Date: 20100721
  Transmission Date: 20110411
  Serious: No
  Sender: FDA-Public Use
  Company Number: US-ASTRAZENECA-2010SE34006

PATIENT
  Age: 89 Year
  Sex: Female
  Weight: 62.6 kg

DRUGS (2)
  1. CRESTOR [Suspect]
     Indication: HYPERCHOLESTEROLAEMIA
     Route: 048
     Dates: start: 20100201
  2. CRESTOR [Suspect]
     Route: 048
     Dates: start: 20100101

REACTIONS (2)
  - FATIGUE [None]
  - ORAL PAIN [None]
